FAERS Safety Report 7393807-2 (Version None)
Quarter: 2011Q1

REPORT INFORMATION
  Report Type: 
  Country: None (occurrence: None)
  Receive Date: 20110330
  Receipt Date: 20110330
  Transmission Date: 20110831
  Serious: Yes (Hospitalization)
  Sender: FDA-Public Use
  Company Number: None

PATIENT
  Age: 70 Year
  Sex: Female
  Weight: 70.3075 kg

DRUGS (2)
  1. BONIVA [Suspect]
     Indication: OSTEOPOROSIS
     Dosage: 1 PER MONTH PO
     Route: 048
     Dates: start: 20050101, end: 20110101
  2. RECLAST [Suspect]
     Indication: OSTEOPOROSIS
     Dosage: 1 PER YEAR IV
     Route: 042
     Dates: start: 20110120, end: 20110128

REACTIONS (4)
  - ARTHRALGIA [None]
  - FEMUR FRACTURE [None]
  - FALL [None]
  - GROIN PAIN [None]
